FAERS Safety Report 7569541-2 (Version None)
Quarter: 2011Q2

REPORT INFORMATION
  Report Type: 
  Country: None (occurrence: None)
  Receive Date: 20110624
  Receipt Date: 20110620
  Transmission Date: 20111010
  Serious: No
  Sender: FDA-Public Use
  Company Number: US-BIOGENIDEC-2011BI022652

PATIENT
  Sex: Male

DRUGS (2)
  1. AVONEX [Suspect]
     Indication: MULTIPLE SCLEROSIS
     Route: 030
     Dates: start: 20040916
  2. AVONEX [Suspect]
     Route: 030
     Dates: end: 20080101

REACTIONS (2)
  - INFLUENZA LIKE ILLNESS [None]
  - DENTAL CARIES [None]
